FAERS Safety Report 16563229 (Version 4)
Quarter: 2020Q4

REPORT INFORMATION
  Report Type: Spontaneous
  Country: CA (occurrence: CA)
  Receive Date: 20190711
  Receipt Date: 20201113
  Transmission Date: 20210113
  Serious: Yes (Other)
  Sender: FDA-Public Use
  Company Number: CA-SAMSUNG BIOEPIS-SB-2019-17834

PATIENT
  Age: 69 Year
  Sex: Male
  Weight: 58 kg

DRUGS (3)
  1. INFLIXIMAB [Suspect]
     Active Substance: INFLIXIMAB
     Dosage: THERAPY DURATION -86.0
     Route: 042
  2. INFLIXIMAB [Suspect]
     Active Substance: INFLIXIMAB
     Indication: CROHN^S DISEASE
     Route: 042
  3. PARA-AMINOSALICYLIC ACID [Concomitant]
     Active Substance: AMINOSALICYLIC ACID
     Indication: PRODUCT USED FOR UNKNOWN INDICATION
     Dosage: UNKNOWN
     Route: 054

REACTIONS (18)
  - Hyperaesthesia [Not Recovered/Not Resolved]
  - Ear discomfort [Not Recovered/Not Resolved]
  - Skin haemorrhage [Not Recovered/Not Resolved]
  - Off label use [Not Recovered/Not Resolved]
  - Anal incontinence [Recovering/Resolving]
  - Fatigue [Not Recovered/Not Resolved]
  - Product use issue [Recovering/Resolving]
  - Dizziness [Not Recovered/Not Resolved]
  - Nausea [Not Recovered/Not Resolved]
  - Asthenia [Not Recovered/Not Resolved]
  - Dermoid cyst [Not Recovered/Not Resolved]
  - Heart rate decreased [Recovering/Resolving]
  - Hypotension [Not Recovered/Not Resolved]
  - Vein rupture [Not Recovered/Not Resolved]
  - Weight increased [Not Recovered/Not Resolved]
  - Heart rate increased [Not Recovered/Not Resolved]
  - Infected cyst [Not Recovered/Not Resolved]
  - Blood pressure fluctuation [Not Recovered/Not Resolved]
